FAERS Safety Report 8960857 (Version 1)
Quarter: 2012Q4

REPORT INFORMATION
  Report Type: Spontaneous
  Country: US (occurrence: None)
  Receive Date: 20121211
  Receipt Date: 20121211
  Transmission Date: 20130627
  Serious: No
  Sender: FDA-Public Use
  Company Number: None

PATIENT
  Age: 53 Year
  Sex: Male
  Weight: 84.5 kg

DRUGS (1)
  1. ZYPREXA [Suspect]
     Indication: PARANOID TYPE SCHIZOPHRENIA, CHRONIC STATE
     Dosage: one a day
     Route: 048
     Dates: start: 201110

REACTIONS (2)
  - Insomnia [None]
  - Product substitution issue [None]
